FAERS Safety Report 8840620 (Version 1)
Quarter: 2012Q4

REPORT INFORMATION
  Report Type: 
  Country: US (occurrence: US)
  Receive Date: 20121015
  Receipt Date: 20121015
  Transmission Date: 20130627
  Serious: Yes (Other)
  Sender: FDA-Public Use
  Company Number: US-ROCHE-1142138

PATIENT
  Sex: Male

DRUGS (8)
  1. CELLCEPT [Suspect]
     Indication: SYSTEMIC LUPUS ERYTHEMATOSUS
     Route: 065
  2. CELLCEPT [Suspect]
     Indication: LUPUS NEPHRITIS
  3. CYTOXAN [Suspect]
     Indication: LUPUS NEPHRITIS
     Route: 065
  4. CYTOXAN [Suspect]
     Indication: SYSTEMIC LUPUS ERYTHEMATOSUS
  5. IMURAN [Suspect]
     Indication: LUPUS NEPHRITIS
     Route: 065
  6. IMURAN [Suspect]
     Indication: SYSTEMIC LUPUS ERYTHEMATOSUS
  7. PREDNISONE [Suspect]
     Indication: SYSTEMIC LUPUS ERYTHEMATOSUS
     Route: 065
  8. PREDNISONE [Suspect]
     Indication: LUPUS NEPHRITIS

REACTIONS (5)
  - Osteonecrosis [Unknown]
  - Chest pain [Unknown]
  - Somnolence [Unknown]
  - Sleep apnoea syndrome [Unknown]
  - Depression [Unknown]
